FAERS Safety Report 7299794-X (Version None)
Quarter: 2011Q1

REPORT INFORMATION
  Report Type: 
  Country: None (occurrence: None)
  Receive Date: 20110217
  Receipt Date: 20110125
  Transmission Date: 20110831
  Serious: No
  Sender: FDA-Public Use
  Company Number: US-B.I. PHARMACEUTICALS,INC./RIDGEFIELD-2011-BP-02574BP

PATIENT
  Sex: Male

DRUGS (4)
  1. PRADAXA [Suspect]
     Indication: ATRIAL FIBRILLATION
     Dosage: 300 MG
     Route: 048
     Dates: start: 20101215
  2. AMIODARONE [Concomitant]
     Dosage: 400 MG
  3. COD LIVER OIL [Concomitant]
     Indication: PROPHYLAXIS
  4. LIPITOR [Concomitant]
     Dosage: 10 MG

REACTIONS (2)
  - ANAEMIA [None]
  - FATIGUE [None]
